FAERS Safety Report 5831905-2 (Version None)
Quarter: 2008Q3

REPORT INFORMATION
  Report Type: 
  Country: None (occurrence: None)
  Receive Date: 20080729
  Receipt Date: 20080717
  Transmission Date: 20090109
  Serious: Yes (Other)
  Sender: FDA-Public Use
  Company Number: STI-2008-02429

PATIENT
  Age: 16 Year
  Sex: Female

DRUGS (1)
  1. 516C CLINDOXYL GEL (CLINDAMYCIN + BENZOYL PEROXIDE) (BENZOYL PEROXIDE [Suspect]
     Indication: ACNE
     Dosage: (AT NIGHT) ONLY ON ACNE SITE
     Dates: start: 20080716

REACTIONS (2)
  - APPLICATION SITE ERYTHEMA [None]
  - APPLICATION SITE SWELLING [None]
